FAERS Safety Report 6532111-9 (Version None)
Quarter: 2009Q4

REPORT INFORMATION
  Report Type: 
  Country: None (occurrence: None)
  Receive Date: 20091228
  Receipt Date: 20090924
  Transmission Date: 20100525
  Serious: Yes (Other)
  Sender: FDA-Public Use
  Company Number: 20090428

PATIENT
  Sex: Male

DRUGS (7)
  1. VENOFER [Suspect]
     Indication: ANAEMIA
     Dosage: INTRAVENOUS
     Route: 042
     Dates: start: 20080101
  2. BLOOD TRANSFUSIONS [Concomitant]
  3. FERRITIN [Concomitant]
  4. VITAMINS + MINERALS [Concomitant]
  5. MORPHINE SULFATE [Concomitant]
  6. CODEINE PHOSPHATE AND ACETAMINOPHEN [Concomitant]
  7. LANDANUM [Concomitant]

REACTIONS (3)
  - EPILEPSY [None]
  - PYREXIA [None]
  - VOMITING [None]
